FAERS Safety Report 14673398 (Version 2)
Quarter: 2018Q2

REPORT INFORMATION
  Report Type: Report from Study
  Country: CO (occurrence: CO)
  Receive Date: 20180323
  Receipt Date: 20180601
  Transmission Date: 20180711
  Serious: Yes (Death, Hospitalization, Other)
  Sender: FDA-Public Use
  Company Number: CO-ASTELLAS-2018US013800

PATIENT
  Age: 58 Year
  Sex: Female

DRUGS (6)
  1. MYCOPHENOLATE [Concomitant]
     Active Substance: MYCOPHENOLIC ACID
     Indication: RENAL TRANSPLANT
     Dosage: 720 MG (360MG TWO TABLET), EVERY 12 HOURS
     Route: 048
     Dates: start: 20160808
  2. TACROLIMUS. [Suspect]
     Active Substance: TACROLIMUS
     Indication: RENAL TRANSPLANT
     Route: 048
     Dates: start: 20160808
  3. CARVEDILOL. [Concomitant]
     Active Substance: CARVEDILOL
     Indication: CARDIAC DISORDER
     Route: 048
     Dates: start: 20160808
  4. EUTIROX [Concomitant]
     Active Substance: LEVOTHYROXINE SODIUM
     Indication: THYROID DISORDER
     Route: 048
     Dates: start: 20160808
  5. TACROLIMUS. [Suspect]
     Active Substance: TACROLIMUS
     Indication: RENAL TRANSPLANT
     Route: 048
     Dates: start: 20160808
  6. INSULIN GLARGINE [Concomitant]
     Active Substance: INSULIN GLARGINE
     Indication: DIABETES MELLITUS
     Dosage: 10 UNITS IN THE MORNING  AND 10 UNITS AT NIGHT, UNKNOWN FREQ.
     Route: 048
     Dates: start: 20160808

REACTIONS (10)
  - Blood potassium decreased [Fatal]
  - Influenza [Recovering/Resolving]
  - Blood sodium decreased [Fatal]
  - Fistula [Recovered/Resolved]
  - General physical health deterioration [Unknown]
  - Cardiac failure [Fatal]
  - Tuberculosis of central nervous system [Not Recovered/Not Resolved]
  - Meningitis [Not Recovered/Not Resolved]
  - Cardio-respiratory arrest [Unknown]
  - Wound infection [Recovered/Resolved]

NARRATIVE: CASE EVENT DATE: 20180206
